FAERS Safety Report 13230918 (Version 2)
Quarter: 2017Q2

REPORT INFORMATION
  Report Type: Report from Study
  Country: CA (occurrence: CA)
  Receive Date: 20170214
  Receipt Date: 20170426
  Transmission Date: 20170830
  Serious: Yes (Hospitalization)
  Sender: FDA-Public Use
  Company Number: CA-HLSUS-2017-CA-000134

PATIENT
  Sex: Male

DRUGS (4)
  1. LEVODOPA [Concomitant]
     Active Substance: LEVODOPA
     Route: 048
  2. FLORINEF ACETATE [Concomitant]
     Active Substance: FLUDROCORTISONE ACETATE
     Dosage: 0.1 MG
     Route: 048
  3. LEVOXYL [Concomitant]
     Active Substance: LEVOTHYROXINE SODIUM
  4. CLOZARIL [Suspect]
     Active Substance: CLOZAPINE
     Indication: PARKINSON^S DISEASE
     Route: 048
     Dates: start: 20140114

REACTIONS (2)
  - Influenza like illness [Recovered/Resolved]
  - Respiratory tract infection [Recovered/Resolved]
